FAERS Safety Report 6254463-X (Version None)
Quarter: 2009Q3

REPORT INFORMATION
  Report Type: 
  Country: None (occurrence: None)
  Receive Date: 20090702
  Receipt Date: 20011108
  Transmission Date: 20100115
  Serious: Yes (Hospitalization)
  Sender: FDA-Public Use
  Company Number: NO-ELI_LILLY_AND_COMPANY-NO200906006171

PATIENT
  Sex: Male

DRUGS (7)
  1. OLANZAPINE [Suspect]
     Dosage: 10 MG, UNK
     Dates: start: 19980101, end: 19980101
  2. OLANZAPINE [Suspect]
     Dosage: 10 MG, UNKNOWN
     Route: 065
     Dates: start: 19980212
  3. LEPONEX [Concomitant]
     Dates: start: 19980101
  4. VALIUM [Concomitant]
     Dates: start: 19980101
  5. MOGADON [Concomitant]
     Dates: start: 19980101
  6. CIPRAMIL [Concomitant]
     Dosage: UNK, UNK
     Dates: start: 19980101, end: 19980101
  7. PARALGIN FORTE [Concomitant]
     Dates: start: 19980101

REACTIONS (5)
  - DRUG TOXICITY [None]
  - DRUG WITHDRAWAL SYNDROME [None]
  - MEDICATION ERROR [None]
  - OBSESSIVE THOUGHTS [None]
  - PAIN [None]
